FAERS Safety Report 19428389 (Version 1)
Quarter: 2021Q2

REPORT INFORMATION
  Report Type: Spontaneous
  Country: US (occurrence: US)
  Receive Date: 20210617
  Receipt Date: 20210617
  Transmission Date: 20210717
  Serious: Yes (Hospitalization)
  Sender: FDA-Public Use
  Company Number: US-SUN PHARMACEUTICAL INDUSTRIES LTD-2021R1-300014

PATIENT
  Age: 21 Month
  Sex: Male
  Weight: 10 kg

DRUGS (1)
  1. ONDANSETRON [Suspect]
     Active Substance: ONDANSETRON
     Indication: PRODUCT USED FOR UNKNOWN INDICATION
     Dosage: 20 TABLET OF 8 MG
     Route: 048

REACTIONS (3)
  - Drug level increased [Unknown]
  - Neurological symptom [Unknown]
  - Overdose [Unknown]
